FAERS Safety Report 5743389-3 (Version None)
Quarter: 2008Q2

REPORT INFORMATION
  Report Type: 
  Country: None (occurrence: None)
  Receive Date: 20080515
  Receipt Date: 20080515
  Transmission Date: 20081010
  Serious: Yes (Other)
  Sender: FDA-Public Use
  Company Number: None

PATIENT
  Sex: Male
  Weight: 102.0593 kg

DRUGS (1)
  1. EFFEXOR XR [Suspect]
     Indication: MAJOR DEPRESSION
     Dosage: 225MG  ONCE A DAY PO
     Route: 048
     Dates: start: 20071101, end: 20080515

REACTIONS (7)
  - ANGER [None]
  - ANORGASMIA [None]
  - HYPOMANIA [None]
  - ILL-DEFINED DISORDER [None]
  - PARAESTHESIA [None]
  - PSYCHOSEXUAL DISORDER [None]
  - SEMEN VOLUME DECREASED [None]
